FAERS Safety Report 4352255-X (Version None)
Quarter: 2004Q2

REPORT INFORMATION
  Report Type: 
  Country: None (occurrence: None)
  Receive Date: 20040420
  Receipt Date: 20040212
  Transmission Date: 20050107
  Serious: Yes (Hospitalization)
  Sender: FDA-Public Use
  Company Number: 2004195876US

PATIENT
  Age: 57 Year
  Sex: Male
  Weight: 118.8 kg

DRUGS (9)
  1. SOMAVERT [Suspect]
     Indication: ACROMEGALY
     Dosage: 10 MG, QD, SUBCUTANEOUS; 15 MG, QD, SUBCUTANEOUS;40 MG, QD, LOADING DOSE, SUBCUTANEOUS
     Route: 058
     Dates: start: 20031124, end: 20031124
  2. SOMAVERT [Suspect]
     Indication: ACROMEGALY
     Dosage: 10 MG, QD, SUBCUTANEOUS; 15 MG, QD, SUBCUTANEOUS;40 MG, QD, LOADING DOSE, SUBCUTANEOUS
     Route: 058
     Dates: start: 20031125, end: 20040114
  3. SOMAVERT [Suspect]
     Indication: ACROMEGALY
     Dosage: 10 MG, QD, SUBCUTANEOUS; 15 MG, QD, SUBCUTANEOUS;40 MG, QD, LOADING DOSE, SUBCUTANEOUS
     Route: 058
     Dates: start: 20040115
  4. SOMAVERT [Suspect]
     Dosage: 10 MG, QD, SUBCUTANEOUS
     Route: 058
  5. SYNTHROID [Concomitant]
  6. HYDROCORTISONE [Concomitant]
  7. TESTOSTERONE [Concomitant]
  8. PEPCID [Concomitant]
  9. AMARYL [Concomitant]

REACTIONS (2)
  - NAUSEA [None]
  - VOMITING [None]
